FAERS Safety Report 7754561-5 (Version None)
Quarter: 2011Q3

REPORT INFORMATION
  Report Type: 
  Country: None (occurrence: None)
  Receive Date: 20110915
  Receipt Date: 20110906
  Transmission Date: 20111222
  Serious: Yes (Death, Life-Threatening)
  Sender: FDA-Public Use
  Company Number: JP-CELGENEUS-087-50794-11090909

PATIENT
  Sex: Female
  Weight: 62 kg

DRUGS (14)
  1. LEVOFLOXACIN [Concomitant]
     Route: 065
     Dates: start: 20110430, end: 20110826
  2. RABEPRAZOLE SODIUM [Concomitant]
     Route: 065
     Dates: end: 20110826
  3. SOLDACTONE [Concomitant]
     Route: 065
     Dates: start: 20110824, end: 20110903
  4. ATELEC [Concomitant]
     Route: 065
     Dates: end: 20110826
  5. ZYRTEC [Concomitant]
     Route: 065
     Dates: end: 20110826
  6. CIBENOL [Concomitant]
     Route: 065
     Dates: end: 20110826
  7. MAXIPIME [Concomitant]
     Indication: PYREXIA
     Route: 065
     Dates: start: 20110812, end: 20110824
  8. AZACITIDINE [Suspect]
     Dosage: 100 MILLIGRAM
     Route: 041
     Dates: start: 20110714, end: 20110720
  9. VALSARTAN [Concomitant]
     Route: 065
     Dates: end: 20110826
  10. VANCOMYCIN HYCHLORIDE [Concomitant]
     Route: 065
     Dates: start: 20110827, end: 20110902
  11. AZACITIDINE [Suspect]
     Dosage: 100 MILLIGRAM
     Route: 041
     Dates: start: 20110430, end: 20110506
  12. MEROPENEM [Concomitant]
     Route: 065
     Dates: start: 20110825, end: 20110902
  13. DIFLUCAN [Concomitant]
     Route: 065
     Dates: start: 20110430, end: 20110826
  14. ALLOPURINOL [Concomitant]
     Route: 065
     Dates: start: 20110430, end: 20110826

REACTIONS (2)
  - PNEUMONIA [None]
  - CARDIAC FAILURE [None]
